FAERS Safety Report 5553371-7 (Version None)
Quarter: 2007Q4

REPORT INFORMATION
  Report Type: 
  Country: None (occurrence: None)
  Receive Date: 20071128
  Receipt Date: 20070807
  Transmission Date: 20080405
  Serious: Yes (Other)
  Sender: FDA-Public Use
  Company Number: CIP07001174

PATIENT
  Age: 75 Year
  Sex: Female

DRUGS (7)
  1. ACTONEL [Suspect]
     Indication: OSTEOPOROSIS
     Dosage: 35 MG ONCE WEEKLY, ORAL
     Route: 048
     Dates: start: 20041001, end: 20070518
  2. AMARYL [Concomitant]
  3. ICAPS (VITAMINS  NOS, MINERALS NOS) [Concomitant]
  4. ASPIRIN /00002701/ (ACETYSALICYLIC ACID) [Concomitant]
  5. CALCIUM VIT D (COLECALCIFEROL, CALCIUM) [Concomitant]
  6. TOPROL-XL [Concomitant]
  7. LOTENSIN /00498401/ (CAPTOPRIL) [Concomitant]

REACTIONS (5)
  - LICHEN PLANUS [None]
  - OSTEOMYELITIS ACUTE [None]
  - OSTEONECROSIS [None]
  - PRIMARY SEQUESTRUM [None]
  - TOOTH EXTRACTION [None]
